FAERS Safety Report 8582621-8 (Version None)
Quarter: 2012Q3

REPORT INFORMATION
  Report Type: 
  Country: None (occurrence: None)
  Receive Date: 20120809
  Receipt Date: 20120807
  Transmission Date: 20120928
  Serious: Yes (Hospitalization)
  Sender: FDA-Public Use
  Company Number: DE-ROCHE-1098432

PATIENT
  Sex: Female
  Weight: 80 kg

DRUGS (9)
  1. ENOXAPARIN SODIUM [Concomitant]
  2. VINORELBINE TARTRATE [Suspect]
     Indication: BREAST CANCER
     Dosage: LAST DOSE PRIOR TO SAE: 30/JUL/2012
     Route: 042
     Dates: start: 20120109
  3. ZOFRAN [Concomitant]
  4. XELODA [Suspect]
     Indication: BREAST CANCER
     Dosage: LAST DOSE PRIOR TO SAE: 03/AUG/2012
     Route: 048
     Dates: start: 20120109
  5. DIGITOXIN TAB [Concomitant]
  6. TRAMAGIT [Concomitant]
  7. DIPYRONE TAB [Concomitant]
     Dosage: 60 DROPS
  8. AVASTIN [Suspect]
     Indication: BREAST CANCER
     Dosage: LAST DOSE PRIOR TO SAE: 23/JUL/2012
     Dates: start: 20120109
  9. SELENASE [Concomitant]

REACTIONS (1)
  - GENERAL PHYSICAL HEALTH DETERIORATION [None]
